FAERS Safety Report 7634552-5 (Version None)
Quarter: 2011Q3

REPORT INFORMATION
  Report Type: 
  Country: None (occurrence: None)
  Receive Date: 20110725
  Receipt Date: 20110715
  Transmission Date: 20111222
  Serious: Yes (Hospitalization)
  Sender: FDA-Public Use
  Company Number: US-ASTRAZENECA-2011SE16251

PATIENT
  Age: 74 Year
  Sex: Male

DRUGS (1)
  1. NEXIUM [Suspect]
     Route: 048

REACTIONS (15)
  - DYSPNOEA [None]
  - HYPOXIA [None]
  - HYPOKALAEMIA [None]
  - CHEST PAIN [None]
  - HYPOTENSION [None]
  - HYPERGLYCAEMIA [None]
  - HYDROPNEUMOTHORAX [None]
  - MYOCARDIAL ISCHAEMIA [None]
  - DIARRHOEA [None]
  - ARTERIOSCLEROSIS [None]
  - ANAEMIA [None]
  - PNEUMOTHORAX [None]
  - CHEST DISCOMFORT [None]
  - PLEURAL EFFUSION [None]
  - ELECTROLYTE IMBALANCE [None]
